FAERS Safety Report 9712467 (Version 1)
Quarter: 2013Q4

REPORT INFORMATION
  Report Type: Spontaneous
  Country: US (occurrence: US)
  Receive Date: 20131126
  Receipt Date: 20131126
  Transmission Date: 20140711
  Serious: No
  Sender: FDA-Public Use
  Company Number: US-BRISTOL-MYERS SQUIBB COMPANY-19181510

PATIENT
  Age: 62 Year
  Sex: Male
  Weight: 111.11 kg

DRUGS (5)
  1. BYDUREON [Suspect]
     Indication: TYPE 2 DIABETES MELLITUS
     Dosage: DURATION OF THERAPY: 1 INJECTION
     Dates: start: 20130805
  2. METFORMIN [Concomitant]
  3. GLIMEPIRIDE [Concomitant]
  4. LOVASTATIN [Concomitant]
  5. BABY ASPIRIN [Concomitant]

REACTIONS (1)
  - Injection site pain [Unknown]
